FAERS Safety Report 14814593 (Version 1)
Quarter: 2018Q2

REPORT INFORMATION
  Report Type: Spontaneous
  Country: BR (occurrence: BR)
  Receive Date: 20180426
  Receipt Date: 20180426
  Transmission Date: 20180711
  Serious: Yes (Other)
  Sender: FDA-Public Use
  Company Number: BR-TEVA-2018-BR-884074

PATIENT
  Age: 72 Year
  Sex: Female

DRUGS (15)
  1. FLORINEFE 0.1 MG [Concomitant]
     Indication: RHEUMATOID ARTHRITIS
     Dosage: 1 TABLET IN THE MORNING
     Dates: start: 2010
  2. SELOZOK 20 MG [Concomitant]
     Indication: ARRHYTHMIA
     Dosage: 1 TABLET PER DAY
     Dates: start: 2016
  3. PHENERGAN [Concomitant]
     Active Substance: PROMETHAZINE HYDROCHLORIDE
     Dosage: 1 TABLET PER DAY AS SOOTHING
  4. MITRUL [Suspect]
     Active Substance: CYCLOBENZAPRINE
     Indication: PAIN
     Dosage: 1 DOSAGE FORMS DAILY;
     Route: 048
     Dates: start: 20180109
  5. PRESSAT 25 MG [Concomitant]
     Indication: ARRHYTHMIA
     Dosage: 1 TABLET PER DAY
     Dates: start: 2008
  6. FRONTAL 0.5 MG [Concomitant]
     Dosage: 1 TABLET AT NIGHT AS SOOTHING, SHE USES OVER 5 YEARS AGO
  7. PROLIA [Concomitant]
     Active Substance: DENOSUMAB
     Indication: RHEUMATOID ARTHRITIS
     Dosage: 1 TABLET EVERY 6 MONTHS
     Dates: start: 201707
  8. OSCAL D [Concomitant]
     Active Substance: CALCIUM CARBONATE\CHOLECALCIFEROL
     Indication: RHEUMATOID ARTHRITIS
     Dosage: 2 TABLET PER DAY
  9. VALSARTAN 160 MG [Concomitant]
     Active Substance: VALSARTAN
     Indication: ARRHYTHMIA
     Dosage: 1 TABLET IN THE MORNING
     Dates: start: 2008
  10. XARELTO [Concomitant]
     Active Substance: RIVAROXABAN
     Indication: THROMBOSIS
     Dosage: 1 TABLET PER DAY
     Dates: start: 20180116
  11. DAFLON 100 MG [Concomitant]
     Indication: THROMBOSIS
     Dosage: 1 TABLET PER DAY
     Dates: start: 20180116
  12. METHOTREXATE 2.5 MG [Concomitant]
     Active Substance: METHOTREXATE
     Indication: RHEUMATOID ARTHRITIS
     Dosage: 3 TABLET PER WEEK
  13. LEVOID 25 MCG [Concomitant]
     Indication: THYROID DISORDER
     Dosage: 1 TABLET PER DAY
  14. FOLIC ACID. [Concomitant]
     Active Substance: FOLIC ACID
     Indication: RHEUMATOID ARTHRITIS
     Dosage: 1 TABLET ON SUNDAYS
  15. DEXILANT [Concomitant]
     Active Substance: DEXLANSOPRAZOLE
     Dosage: 1 TABLET PER DAY

REACTIONS (4)
  - Thrombosis [Not Recovered/Not Resolved]
  - Malaise [Not Recovered/Not Resolved]
  - Movement disorder [Not Recovered/Not Resolved]
  - Somnolence [Not Recovered/Not Resolved]

NARRATIVE: CASE EVENT DATE: 20180109
